FAERS Safety Report 4884857-6 (Version None)
Quarter: 2006Q1

REPORT INFORMATION
  Report Type: 
  Country: None (occurrence: None)
  Receive Date: 20060119
  Receipt Date: 20051010
  Transmission Date: 20060701
  Serious: Yes (Congenital Anomaly, Other)
  Sender: FDA-Public Use
  Company Number: GB-JNJFOC20050906041

PATIENT

DRUGS (5)
  1. LAMOTRIGINE [Suspect]
  2. TOPAMAX [Suspect]
  3. CLOBAZAM [Suspect]
  4. VALPROATE SODIUM [Suspect]
  5. NO CONCURRENT MEDICATION [Concomitant]

REACTIONS (2)
  - DRUG EXPOSURE DURING PREGNANCY [None]
  - HYPOSPADIAS [None]
